FAERS Safety Report 7724371-3 (Version None)
Quarter: 2011Q3

REPORT INFORMATION
  Report Type: 
  Country: None (occurrence: None)
  Receive Date: 20110901
  Receipt Date: 20110825
  Transmission Date: 20111222
  Serious: Yes (Other)
  Sender: FDA-Public Use
  Company Number: JP-JNJFOC-20110812948

PATIENT
  Age: 54 Year
  Sex: Male
  Weight: 53 kg

DRUGS (20)
  1. RINDERON-VG [Concomitant]
     Indication: PSORIATIC ARTHROPATHY
     Route: 003
  2. CLOBETASOL PROPIONATE [Concomitant]
     Indication: PSORIATIC ARTHROPATHY
     Route: 003
  3. OLOPATADINE HCL [Concomitant]
     Indication: PSORIATIC ARTHROPATHY
     Route: 048
  4. REMICADE [Suspect]
     Dosage: 4TH DOSE
     Route: 042
     Dates: start: 20101206
  5. SEPAZON [Concomitant]
     Route: 048
     Dates: start: 20100722
  6. METHOTREXATE [Concomitant]
     Indication: PSORIATIC ARTHROPATHY
     Route: 048
     Dates: start: 20100827, end: 20101008
  7. REMICADE [Suspect]
     Route: 042
     Dates: start: 20100816
  8. REMICADE [Suspect]
     Dosage: 3RD DOSE
     Route: 042
     Dates: start: 20100917
  9. ISONIAZID [Concomitant]
     Indication: ANTIBIOTIC PROPHYLAXIS
     Dates: start: 20100712
  10. ZOLPIDEM [Concomitant]
     Route: 048
  11. INBESTAN [Concomitant]
     Indication: PSORIATIC ARTHROPATHY
     Route: 048
  12. LOXONIN [Concomitant]
  13. REMICADE [Suspect]
     Indication: PSORIATIC ARTHROPATHY
     Dosage: 1ST DOSE
     Route: 042
     Dates: start: 20100705
  14. ROHYPNOL [Concomitant]
     Route: 048
     Dates: start: 20100722
  15. PREDNISOLONE [Concomitant]
     Indication: PSORIATIC ARTHROPATHY
     Route: 048
     Dates: start: 20100820
  16. FOIPAN [Concomitant]
     Route: 048
     Dates: start: 20100924
  17. OMEPRAZOLE [Concomitant]
     Route: 048
     Dates: start: 20100927
  18. REMICADE [Suspect]
     Route: 042
     Dates: start: 20110214
  19. MAGMITT [Concomitant]
     Route: 048
     Dates: start: 20100730
  20. SALICYLIC ACID [Concomitant]
     Indication: PSORIATIC ARTHROPATHY
     Route: 003

REACTIONS (2)
  - ANAEMIA [None]
  - PANCREATITIS CHRONIC [None]
